FAERS Safety Report 11152859 (Version 1)
Quarter: 2015Q2

REPORT INFORMATION
  Report Type: Spontaneous
  Country: ZA (occurrence: ZA)
  Receive Date: 20150601
  Receipt Date: 20150601
  Transmission Date: 20150821
  Serious: Yes (Death, Other)
  Sender: FDA-Public Use
  Company Number: ZA-009507513-1505ZAF015029

PATIENT
  Sex: Male

DRUGS (1)
  1. CANCIDAS [Suspect]
     Active Substance: CASPOFUNGIN ACETATE

REACTIONS (2)
  - Multi-organ failure [Fatal]
  - Septic shock [Fatal]
